FAERS Safety Report 8073212-6 (Version None)
Quarter: 2012Q1

REPORT INFORMATION
  Report Type: 
  Country: None (occurrence: None)
  Receive Date: 20120126
  Receipt Date: 20120123
  Transmission Date: 20120608
  Serious: Yes (Death)
  Sender: FDA-Public Use
  Company Number: PHHY2012DE006010

PATIENT
  Sex: Female
  Weight: 85 kg

DRUGS (5)
  1. DIPYRONE TAB [Concomitant]
     Dosage: 30-90 DROPS DAILY
  2. ZOMETA [Suspect]
     Indication: BONE DISORDER
     Dosage: 4 MG, EVERY 4 WEEKS
     Route: 042
     Dates: start: 20110721, end: 20111014
  3. BEVACIZUMAB [Concomitant]
     Indication: BRONCHIAL CARCINOMA
     Dosage: 6 CYCLES
     Route: 042
     Dates: start: 20110725, end: 20111109
  4. CISPLATIN [Concomitant]
     Indication: BRONCHIAL CARCINOMA
     Dosage: 6 CYCLES
     Route: 042
     Dates: start: 20110725, end: 20111017
  5. GEMCITABINE [Concomitant]
     Indication: BRONCHIAL CARCINOMA
     Dosage: 6 CYCLES
     Route: 042
     Dates: start: 20110725, end: 20111017

REACTIONS (3)
  - NEOPLASM PROGRESSION [None]
  - NEOPLASM MALIGNANT [None]
  - ASTHENIA [None]
